FAERS Safety Report 6517252-4 (Version None)
Quarter: 2009Q4

REPORT INFORMATION
  Report Type: 
  Country: None (occurrence: None)
  Receive Date: 20091217
  Receipt Date: 20090812
  Transmission Date: 20100525
  Serious: Yes (Other)
  Sender: FDA-Public Use
  Company Number: 85504

PATIENT
  Age: 50 Year
  Sex: Male

DRUGS (1)
  1. CISPLATIN [Suspect]
     Indication: HEAD AND NECK CANCER
     Dosage: 20MG/M2
     Dates: start: 20090512, end: 20090622

REACTIONS (1)
  - LYMPHOPENIA [None]
